FAERS Safety Report 9490670 (Version 2)
Quarter: 2013Q3

REPORT INFORMATION
  Report Type: Spontaneous
  Country: US (occurrence: US)
  Receive Date: 20130830
  Receipt Date: 20130919
  Transmission Date: 20140515
  Serious: Yes (Hospitalization)
  Sender: FDA-Public Use
  Company Number: US-BAXTER-2013BAX033761

PATIENT
  Age: 52 Year
  Sex: Male

DRUGS (6)
  1. DIANEAL LOW CALCIUM [Suspect]
     Indication: PERITONEAL DIALYSIS
     Route: 033
     Dates: start: 201103
  2. DIANEAL LOW CALCIUM [Suspect]
     Route: 033
     Dates: start: 201103
  3. DIANEAL LOW CALCIUM [Suspect]
     Route: 033
     Dates: start: 201103
  4. DIANEAL LOW CALCIUM [Suspect]
     Indication: PERITONEAL DIALYSIS
     Route: 033
     Dates: start: 201103
  5. DIANEAL LOW CALCIUM [Suspect]
     Route: 033
     Dates: start: 201103
  6. DIANEAL LOW CALCIUM [Suspect]
     Route: 033
     Dates: start: 201103

REACTIONS (2)
  - Cellulitis [Not Recovered/Not Resolved]
  - Gangrene [Not Recovered/Not Resolved]
